FAERS Safety Report 21056700 (Version 1)
Quarter: 2022Q3

REPORT INFORMATION
  Report Type: Spontaneous
  Country: None (occurrence: US)
  Receive Date: 20220708
  Receipt Date: 20220708
  Transmission Date: 20221027
  Serious: No
  Sender: FDA-Public Use
  Company Number: US-Avondale Pharmaceuticals, LLC-2130641

PATIENT
  Age: 69 Year
  Sex: Female

DRUGS (1)
  1. NIACOR [Suspect]
     Active Substance: NIACIN
     Indication: Product used for unknown indication
     Route: 065

REACTIONS (1)
  - Hypersensitivity [Unknown]
